FAERS Safety Report 21942863 (Version 2)
Quarter: 2023Q1

REPORT INFORMATION
  Report Type: Spontaneous
  Country: JP (occurrence: JP)
  Receive Date: 20230202
  Receipt Date: 20230227
  Transmission Date: 20230417
  Serious: Yes (Hospitalization)
  Sender: FDA-Public Use
  Company Number: JP-002147023-NVSJ2022JP277291

PATIENT
  Age: 9 Year
  Sex: Female

DRUGS (1)
  1. ELTROMBOPAG OLAMINE [Suspect]
     Active Substance: ELTROMBOPAG OLAMINE
     Indication: Immune thrombocytopenia
     Dosage: 37.5 MG, QD, FASTING
     Route: 048

REACTIONS (2)
  - Immune thrombocytopenia [Recovered/Resolved]
  - Condition aggravated [Recovered/Resolved]
